FAERS Safety Report 8819550 (Version 2)
Quarter: 2012Q4

REPORT INFORMATION
  Report Type: 
  Country: US (occurrence: US)
  Receive Date: 20120930
  Receipt Date: 20121024
  Transmission Date: 20130627
  Serious: No
  Sender: FDA-Public Use
  Company Number: US-ROXANE LABORATORIES, INC.-2012-RO-01834RO

PATIENT
  Age: 24 Year
  Sex: Female

DRUGS (3)
  1. BUPRENORPHINE HYDROCHLORIDE [Suspect]
     Indication: DRUG DEPENDENCE
     Dosage: 4 mg
     Route: 060
     Dates: start: 20120907
  2. BUPRENORPHINE HYDROCHLORIDE [Suspect]
     Indication: WITHDRAWAL SYNDROME
  3. XANAX [Concomitant]
     Dosage: 0.25 mg
     Route: 048

REACTIONS (2)
  - Drug withdrawal syndrome [Recovered/Resolved]
  - Product quality issue [Unknown]
